FAERS Safety Report 21587921 (Version 1)
Quarter: 2022Q4

REPORT INFORMATION
  Report Type: Spontaneous
  Country: ES (occurrence: ES)
  Receive Date: 20221114
  Receipt Date: 20221114
  Transmission Date: 20230113
  Serious: Yes (Other)
  Sender: FDA-Public Use
  Company Number: ES-IPSEN Group, Research and Development-2022-30465

PATIENT
  Age: 41 Year
  Sex: Male

DRUGS (1)
  1. NUTROPIN AQ [Suspect]
     Active Substance: SOMATROPIN
     Indication: Spinal cord disorder
     Dosage: DOSE NOT REPORTED
     Route: 065
     Dates: start: 2015

REACTIONS (2)
  - Demyelination [Unknown]
  - Off label use [Unknown]
